FAERS Safety Report 7521264-1 (Version None)
Quarter: 2011Q2

REPORT INFORMATION
  Report Type: 
  Country: None (occurrence: None)
  Receive Date: 20110603
  Receipt Date: 20101215
  Transmission Date: 20111010
  Serious: Yes (Death, Life-Threatening, Hospitalization)
  Sender: FDA-Public Use
  Company Number: JP-BAYER-201011756BYL

PATIENT
  Age: 62 Year
  Sex: Male
  Weight: 57 kg

DRUGS (12)
  1. FLIVAS [Concomitant]
     Dosage: SINCE BEFORE ADMINISTRATION
     Route: 048
  2. UBRETID [Concomitant]
     Dosage: SINCE BEFORE ADMINISTRATION
     Route: 048
  3. GASTROM [Concomitant]
     Dosage: SINCE BEFORE ADMINISTRATION
     Route: 048
  4. HUMULIN R [Concomitant]
     Dosage: SINCE BEFORE ADMINISTRATION
     Route: 058
  5. NEXAVAR [Suspect]
     Indication: HEPATIC NEOPLASM MALIGNANT
     Dosage: 400 MG (DAILY DOSE), , ORAL
     Route: 048
     Dates: start: 20090713, end: 20090727
  6. NEXAVAR [Suspect]
     Dosage: 200 MG (DAILY DOSE), , ORAL
     Route: 048
     Dates: start: 20090731, end: 20090816
  7. LIPIODOL ULTRA-FLUIDE [Concomitant]
     Dosage: 3 ML (DAILY DOSE), , INTRA-ARTERIAL
     Route: 013
     Dates: start: 20091105, end: 20091105
  8. OMEPRAZOLE [Concomitant]
     Dosage: SINCE BEFORE ADMINISTRATION
     Route: 048
  9. OXYCONTIN [Concomitant]
     Indication: CANCER PAIN
     Dosage: 20 MG (DAILY DOSE), , ORAL
     Route: 048
     Dates: start: 20091204, end: 20091218
  10. ASPIRIN [Concomitant]
     Indication: PROPHYLAXIS
     Dosage: SINCE BEFORE ADMINISTRATION
     Route: 048
  11. SAHNE [Concomitant]
     Indication: PROPHYLAXIS
     Dosage: SINCE BEFORE ADMINISTRATION
     Route: 061
  12. EPIRUBICIN HYDROCHLORIDE [Concomitant]
     Dosage: 30 MG (DAILY DOSE), , INTRA-ARTERIAL
     Route: 013
     Dates: start: 20091105, end: 20091105

REACTIONS (18)
  - HEPATIC ENCEPHALOPATHY [None]
  - PLATELET COUNT DECREASED [None]
  - ECZEMA [None]
  - GASTROENTERITIS BACTERIAL [None]
  - BLOOD ALBUMIN DECREASED [None]
  - ASPARTATE AMINOTRANSFERASE INCREASED [None]
  - BLOOD SODIUM DECREASED [None]
  - PROTHROMBIN TIME PROLONGED [None]
  - HAEMOGLOBIN DECREASED [None]
  - BLOOD ALKALINE PHOSPHATASE INCREASED [None]
  - HEPATIC NEOPLASM MALIGNANT [None]
  - WHITE BLOOD CELL COUNT INCREASED [None]
  - ALANINE AMINOTRANSFERASE INCREASED [None]
  - CANCER PAIN [None]
  - ASCITES [None]
  - PALMAR-PLANTAR ERYTHRODYSAESTHESIA SYNDROME [None]
  - DIARRHOEA [None]
  - BLOOD BILIRUBIN INCREASED [None]
